FAERS Safety Report 17613329 (Version 1)
Quarter: 2020Q2

REPORT INFORMATION
  Report Type: Spontaneous
  Country: IT (occurrence: IT)
  Receive Date: 20200402
  Receipt Date: 20200402
  Transmission Date: 20200713
  Serious: Yes (Other)
  Sender: FDA-Public Use
  Company Number: IT-SUN PHARMACEUTICAL INDUSTRIES LTD-2020RR-242516

PATIENT

DRUGS (2)
  1. LETROZOLE. [Suspect]
     Active Substance: LETROZOLE
     Indication: BREAST CANCER
     Dosage: 21-D-ON, 7-D-OFF BASIS
     Route: 048
     Dates: start: 201811
  2. PALBOCILCIB [Suspect]
     Active Substance: PALBOCICLIB
     Indication: BREAST CANCER
     Dosage: 21-D-ON, 7-D-OFF BASIS);
     Route: 048
     Dates: start: 201811, end: 201905

REACTIONS (7)
  - Dry mouth [Recovered/Resolved]
  - Tongue discomfort [Recovered/Resolved]
  - Glossodynia [Recovered/Resolved]
  - Neutropenia [Unknown]
  - Dysgeusia [Recovered/Resolved]
  - Paraesthesia [Unknown]
  - Dysaesthesia [Unknown]

NARRATIVE: CASE EVENT DATE: 201811
